FAERS Safety Report 7008208-6 (Version None)
Quarter: 2010Q3

REPORT INFORMATION
  Report Type: 
  Country: None (occurrence: None)
  Receive Date: 20100922
  Receipt Date: 20100909
  Transmission Date: 20110219
  Serious: Yes (Other)
  Sender: FDA-Public Use
  Company Number: BR-PFIZER INC-2010114507

PATIENT
  Sex: Female

DRUGS (3)
  1. LYRICA [Suspect]
     Indication: FIBROMYALGIA
     Dosage: 150 MG, 2X/DAY (2 CAPSULES OF 75 MG, EVERY 12 HOURS)
     Route: 048
     Dates: start: 20100801
  2. CRESTOR [Concomitant]
     Indication: BLOOD CHOLESTEROL INCREASED
     Dosage: UNK
  3. ETODOLAC [Concomitant]

REACTIONS (2)
  - ARTHROSCOPY [None]
  - HEADACHE [None]
